FAERS Safety Report 24704621 (Version 1)
Quarter: 2024Q4

REPORT INFORMATION
  Report Type: Spontaneous
  Country: GB (occurrence: GB)
  Receive Date: 20241206
  Receipt Date: 20241206
  Transmission Date: 20250115
  Serious: Yes (Other)
  Sender: ESPERION THERAPEUTICS
  Company Number: None

PATIENT

DRUGS (2)
  1. BEMPEDOIC ACID\EZETIMIBE [Suspect]
     Active Substance: BEMPEDOIC ACID\EZETIMIBE
     Indication: High density lipoprotein
     Dosage: 10 MG, QD (ONCE A DAY)
     Route: 065
     Dates: start: 202409, end: 20241115
  2. UMECLIDINIUM BROMIDE\VILANTEROL TRIFENATATE [Concomitant]
     Active Substance: UMECLIDINIUM BROMIDE\VILANTEROL TRIFENATATE
     Indication: Bronchiectasis
     Dosage: UNK
     Route: 065
     Dates: start: 2018

REACTIONS (8)
  - Memory impairment [Unknown]
  - Visual impairment [Unknown]
  - Bladder disorder [Unknown]
  - Muscular weakness [Unknown]
  - Arthralgia [Recovering/Resolving]
  - Functional gastrointestinal disorder [Unknown]
  - Balance disorder [Unknown]
  - Fatigue [Unknown]

NARRATIVE: CASE EVENT DATE: 20241001
